FAERS Safety Report 7439033-X (Version None)
Quarter: 2011Q2

REPORT INFORMATION
  Report Type: 
  Country: None (occurrence: None)
  Receive Date: 20110427
  Receipt Date: 20110418
  Transmission Date: 20111010
  Serious: Yes (Hospitalization)
  Sender: FDA-Public Use
  Company Number: US-BIOGENIDEC-2011BI008644

PATIENT
  Age: 63 Year
  Sex: Female

DRUGS (6)
  1. ADVAIR DISKUS 100/50 [Concomitant]
     Indication: ASTHMA
  2. AVONEX [Suspect]
     Indication: MULTIPLE SCLEROSIS
     Route: 030
     Dates: start: 19990101, end: 20101227
  3. ADVAIR DISKUS 100/50 [Concomitant]
     Indication: MULTIPLE ALLERGIES
  4. SINGULAIR [Concomitant]
     Indication: MULTIPLE ALLERGIES
  5. AVONEX [Suspect]
     Route: 030
     Dates: start: 20110322
  6. SINGULAIR [Concomitant]
     Indication: ASTHMA

REACTIONS (4)
  - CARDIAC FAILURE CONGESTIVE [None]
  - AORTIC VALVE STENOSIS [None]
  - CHILLS [None]
  - MITRAL VALVE INCOMPETENCE [None]
